FAERS Safety Report 14999749 (Version 1)
Quarter: 2018Q2

REPORT INFORMATION
  Report Type: Spontaneous
  Country: DE (occurrence: DE)
  Receive Date: 20180612
  Receipt Date: 20180612
  Transmission Date: 20180711
  Serious: Yes (Life-Threatening, Other)
  Sender: FDA-Public Use
  Company Number: DE-TEVA-2018-DE-905230

PATIENT
  Sex: Male
  Weight: 80 kg

DRUGS (2)
  1. CLOPIDOGREL [Suspect]
     Active Substance: CLOPIDOGREL BISULFATE
     Indication: ACUTE MYOCARDIAL INFARCTION
     Route: 048
     Dates: start: 20180224, end: 20180327
  2. RIVAROXABAN [Concomitant]
     Active Substance: RIVAROXABAN
     Route: 065
     Dates: start: 20180226, end: 20180327

REACTIONS (1)
  - Neutropenia [Not Recovered/Not Resolved]

NARRATIVE: CASE EVENT DATE: 20180327
